FAERS Safety Report 6032774-0 (Version None)
Quarter: 2009Q1

REPORT INFORMATION
  Report Type: 
  Country: None (occurrence: None)
  Receive Date: 20090105
  Receipt Date: 20081030
  Transmission Date: 20090719
  Serious: Yes (Other)
  Sender: FDA-Public Use
  Company Number: US-002071

PATIENT
  Age: 14 Year
  Sex: Male

DRUGS (2)
  1. MULTIHANCE [Suspect]
     Indication: HEADACHE
     Dosage: 20ML QD INTRAVENOUS
     Route: 042
     Dates: start: 20081029, end: 20081029
  2. MULTIHANCE [Suspect]
     Indication: NUCLEAR MAGNETIC RESONANCE IMAGING
     Dosage: 20ML QD INTRAVENOUS
     Route: 042
     Dates: start: 20081029, end: 20081029

REACTIONS (1)
  - HYPERSENSITIVITY [None]
